FAERS Safety Report 13850017 (Version 1)
Quarter: 2017Q3

REPORT INFORMATION
  Report Type: Spontaneous
  Country: FR (occurrence: FR)
  Receive Date: 20170809
  Receipt Date: 20170809
  Transmission Date: 20171127
  Serious: Yes (Hospitalization)
  Sender: FDA-Public Use
  Company Number: FR-AUROBINDO-AUR-APL-2017-38402

PATIENT
  Age: 59 Year
  Sex: Male

DRUGS (8)
  1. PERINDOPRIL ARROW 2 MG TABLETS [Suspect]
     Active Substance: PERINDOPRIL
     Indication: MYOCARDIAL INFARCTION
     Dosage: 2 MG, DAILY
     Route: 048
     Dates: start: 20170703, end: 20170710
  2. KARDEGIC [Concomitant]
     Active Substance: ASPIRIN LYSINE
     Indication: PRODUCT USED FOR UNKNOWN INDICATION
     Route: 065
  3. OLANZAPINE. [Concomitant]
     Active Substance: OLANZAPINE
     Indication: PRODUCT USED FOR UNKNOWN INDICATION
     Route: 065
  4. NEBIVOLOL. [Concomitant]
     Active Substance: NEBIVOLOL
     Indication: PRODUCT USED FOR UNKNOWN INDICATION
     Route: 065
  5. ATORVASTATIN [Suspect]
     Active Substance: ATORVASTATIN
     Indication: PRODUCT USED FOR UNKNOWN INDICATION
     Dosage: UNK
     Route: 065
     Dates: start: 20170703, end: 20170710
  6. XENETIX [Suspect]
     Active Substance: IOBITRIDOL
     Indication: ARTERIOGRAM CORONARY
     Dosage: 200 ML, DAILY
     Route: 042
     Dates: start: 20170710, end: 20170710
  7. PLAVIX [Concomitant]
     Active Substance: CLOPIDOGREL BISULFATE
     Indication: PRODUCT USED FOR UNKNOWN INDICATION
     Route: 065
  8. LOXAPAC                            /00401801/ [Concomitant]
     Active Substance: LOXAPINE SUCCINATE
     Indication: PRODUCT USED FOR UNKNOWN INDICATION
     Route: 065

REACTIONS (3)
  - Urticaria [Recovered/Resolved]
  - Eyelid oedema [Recovered/Resolved]
  - Lip oedema [Recovered/Resolved]

NARRATIVE: CASE EVENT DATE: 20170710
